FAERS Safety Report 19662056 (Version 14)
Quarter: 2025Q1

REPORT INFORMATION
  Report Type: Spontaneous
  Country: US (occurrence: US)
  Receive Date: 20210805
  Receipt Date: 20250221
  Transmission Date: 20250408
  Serious: Yes (Hospitalization, Other)
  Sender: PFIZER
  Company Number: US-PFIZER INC-202100935351

PATIENT
  Age: 71 Year
  Sex: Female
  Weight: 69.388 kg

DRUGS (10)
  1. IBRANCE [Suspect]
     Active Substance: PALBOCICLIB
     Indication: Breast cancer metastatic
     Dates: start: 20210715, end: 2021
  2. IBRANCE [Suspect]
     Active Substance: PALBOCICLIB
     Route: 048
     Dates: start: 2021, end: 20240616
  3. IBRANCE [Suspect]
     Active Substance: PALBOCICLIB
  4. LETROZOLE [Concomitant]
     Active Substance: LETROZOLE
     Indication: Neoplasm malignant
     Dosage: 2.5MG ONCE A DAY
     Dates: start: 2021
  5. TRAMADOL [Concomitant]
     Active Substance: TRAMADOL
     Indication: Pain
  6. OMEPRAZOLE [Concomitant]
     Active Substance: OMEPRAZOLE
     Indication: Gastrooesophageal reflux disease
  7. LOSARTAN [Concomitant]
     Active Substance: LOSARTAN
     Indication: Blood pressure abnormal
  8. FAMOTIDINE [Concomitant]
     Active Substance: FAMOTIDINE
     Indication: Gastrooesophageal reflux disease
  9. MIRALAX [Concomitant]
     Active Substance: POLYETHYLENE GLYCOL 3350
     Indication: Constipation
     Dosage: UNK, DAILY
  10. DULCOLAX (BISACODYL) [Concomitant]
     Active Substance: BISACODYL
     Indication: Constipation
     Dosage: UNK, DAILY

REACTIONS (19)
  - Pain [Not Recovered/Not Resolved]
  - Choking [Unknown]
  - Dysphagia [Unknown]
  - Blood potassium decreased [Unknown]
  - Loss of consciousness [Unknown]
  - Joint instability [Unknown]
  - Feeling abnormal [Unknown]
  - Decreased appetite [Not Recovered/Not Resolved]
  - Nausea [Recovered/Resolved]
  - Vomiting [Recovered/Resolved]
  - Myalgia [Not Recovered/Not Resolved]
  - Hypotension [Recovered/Resolved]
  - Arthralgia [Unknown]
  - Back pain [Unknown]
  - Headache [Recovered/Resolved]
  - Eructation [Recovering/Resolving]
  - Constipation [Recovering/Resolving]
  - Dysphagia [Unknown]
  - Weight decreased [Unknown]

NARRATIVE: CASE EVENT DATE: 20210101
